FAERS Safety Report 24924471 (Version 1)
Quarter: 2025Q1

REPORT INFORMATION
  Report Type: Spontaneous
  Country: US (occurrence: US)
  Receive Date: 20250204
  Receipt Date: 20250204
  Transmission Date: 20250409
  Serious: Yes (Other)
  Sender: JOHNSON AND JOHNSON
  Company Number: US-JNJFOC-20250185189

PATIENT
  Sex: Male
  Weight: 160.57 kg

DRUGS (1)
  1. TREMFYA [Suspect]
     Active Substance: GUSELKUMAB
     Indication: Psoriasis
     Route: 058

REACTIONS (4)
  - Diabetes mellitus [Unknown]
  - Psoriasis [Unknown]
  - Weight increased [Unknown]
  - Drug ineffective [Unknown]
